FAERS Safety Report 17162649 (Version 16)
Quarter: 2020Q4

REPORT INFORMATION
  Report Type: Spontaneous
  Country: CA (occurrence: CA)
  Receive Date: 20191217
  Receipt Date: 20201226
  Transmission Date: 20210113
  Serious: Yes (Other)
  Sender: FDA-Public Use
  Company Number: CA-CELLTRION INC.-2019CA018515

PATIENT

DRUGS (28)
  1. INFLECTRA [Suspect]
     Active Substance: INFLIXIMAB-DYYB
     Dosage: 7.5 MG/KG, EVERY 6 WEEKS
     Route: 042
     Dates: start: 20191219
  2. CALCIUM [Concomitant]
     Active Substance: CALCIUM
     Dosage: UNK
  3. INFLECTRA [Suspect]
     Active Substance: INFLIXIMAB-DYYB
     Dosage: 5 MG/KG, AT 0, 2, 6 WEEKS, THEN EVERY 8 WEEKS
     Route: 042
     Dates: start: 20190606
  4. MEDRONE [METHYLPREDNISOLONE] [Concomitant]
     Active Substance: METHYLPREDNISOLONE
     Indication: MENOPAUSE
     Dosage: 2.5 MG, DAILY
     Route: 048
  5. IRON [Concomitant]
     Active Substance: IRON
     Dosage: UNK
     Route: 048
     Dates: start: 201912
  6. INFLECTRA [Suspect]
     Active Substance: INFLIXIMAB-DYYB
     Dosage: 5 MG/KG, AT 0, 2, 6 WEEKS, THEN EVERY 8 WEEKS
     Route: 042
     Dates: start: 20190801
  7. INFLECTRA [Suspect]
     Active Substance: INFLIXIMAB-DYYB
     Dosage: 7.5 MG/KG, EVERY 6 WEEKS
     Route: 042
     Dates: start: 20200130
  8. INFLECTRA [Suspect]
     Active Substance: INFLIXIMAB-DYYB
     Dosage: 7.5 MG/KG, EVERY 6 WEEKS
     Route: 042
     Dates: start: 20201217
  9. INFLECTRA [Suspect]
     Active Substance: INFLIXIMAB-DYYB
     Indication: CROHN^S DISEASE
     Dosage: 5 MG/KG, AT 0, 2, 6 WEEKS, THEN EVERY 8 WEEKS
     Route: 042
     Dates: start: 20190103
  10. VITAMIN C [Concomitant]
     Active Substance: ASCORBIC ACID
     Dosage: UNK
     Route: 065
  11. VITAMIN D NOS [Concomitant]
     Active Substance: VITAMIN D NOS
     Dosage: UNK
     Route: 065
  12. RAMIPRIL TEVA [Concomitant]
     Active Substance: RAMIPRIL
     Dosage: UNK
     Route: 065
     Dates: start: 201901
  13. PNEUMOVAX 23 [Concomitant]
     Active Substance: PNEUMOCOCCAL VACCINE, POLYVALENT 23
     Indication: IMMUNISATION
     Dosage: UNK, SINGLE
     Dates: start: 201902
  14. ESTRADIOL. [Concomitant]
     Active Substance: ESTRADIOL
     Indication: MENOPAUSE
     Dosage: 1 MG, DAILY
     Route: 048
  15. INFLECTRA [Suspect]
     Active Substance: INFLIXIMAB-DYYB
     Dosage: 5 MG/KG, AT 0, 2, 6, WEEKS THEN EVERY 8 WEEKS
     Route: 042
     Dates: start: 20191024
  16. INFLECTRA [Suspect]
     Active Substance: INFLIXIMAB-DYYB
     Dosage: 7.5 MG/KG, EVERY 6 WEEKS
     Route: 042
     Dates: start: 20191219
  17. INFLECTRA [Suspect]
     Active Substance: INFLIXIMAB-DYYB
     Dosage: 7.5 MG/KG, EVERY 6 WEEKS
     Route: 042
     Dates: start: 20200902
  18. INFLECTRA [Suspect]
     Active Substance: INFLIXIMAB-DYYB
     Dosage: 7.5 MG/KG, EVERY 6 WEEKS
     Route: 042
     Dates: start: 20201105
  19. INFLECTRA [Suspect]
     Active Substance: INFLIXIMAB-DYYB
     Dosage: 5 MG/KG, AT 0, 2, 6 WEEKS, THEN EVERY 8 WEEKS
     Route: 042
     Dates: start: 20190117
  20. INFLECTRA [Suspect]
     Active Substance: INFLIXIMAB-DYYB
     Dosage: 5 MG/KG, AT 0, 2, 6 WEEKS, THEN EVERY 8 WEEKS
     Route: 042
     Dates: start: 20190214
  21. INFLECTRA [Suspect]
     Active Substance: INFLIXIMAB-DYYB
     Dosage: 7.5 MG/KG, EVERY 6 WEEKS
     Route: 042
     Dates: start: 20190912
  22. INFLECTRA [Suspect]
     Active Substance: INFLIXIMAB-DYYB
     Dosage: 7.5 MG/KG, EVERY 6 WEEKS
     Route: 042
     Dates: start: 20191219
  23. INFLECTRA [Suspect]
     Active Substance: INFLIXIMAB-DYYB
     Dosage: 7.5 MG/KG, EVERY 6 WEEKS
     Route: 042
     Dates: start: 20201217
  24. PURINETHOL [Concomitant]
     Active Substance: MERCAPTOPURINE
     Dosage: UNK
     Route: 065
     Dates: start: 20181227
  25. INFLECTRA [Suspect]
     Active Substance: INFLIXIMAB-DYYB
     Dosage: 5 MG/KG, AT 0, 2, 6 WEEKS, THEN EVERY 8 WEEKS
     Route: 042
     Dates: start: 20190411
  26. INFLECTRA [Suspect]
     Active Substance: INFLIXIMAB-DYYB
     Dosage: 7.5 MG/KG, EVERY 6 WEEKS
     Route: 042
     Dates: start: 20200312
  27. INFLECTRA [Suspect]
     Active Substance: INFLIXIMAB-DYYB
     Dosage: 7.5 MG/KG, EVERY 6 WEEKS
     Route: 042
     Dates: start: 20200715
  28. RAMIPRIL TEVA [Concomitant]
     Active Substance: RAMIPRIL
     Dosage: UNK
     Route: 065
     Dates: start: 20181228

REACTIONS (29)
  - Influenza like illness [Recovering/Resolving]
  - Pain in extremity [Unknown]
  - Dizziness [Unknown]
  - Acne [Not Recovered/Not Resolved]
  - Restless legs syndrome [Unknown]
  - Urticaria [Recovered/Resolved]
  - Dyspepsia [Unknown]
  - Urinary tract infection [Recovering/Resolving]
  - Nasopharyngitis [Unknown]
  - Back pain [Unknown]
  - Pyrexia [Unknown]
  - Throat clearing [Unknown]
  - Off label use [Unknown]
  - Blood pressure fluctuation [Unknown]
  - Cough [Not Recovered/Not Resolved]
  - Micturition urgency [Unknown]
  - Erythema [Recovered/Resolved]
  - Rash [Recovered/Resolved]
  - Pruritus [Recovered/Resolved]
  - Intentional product use issue [Unknown]
  - Inappropriate schedule of product administration [Unknown]
  - Asthenia [Unknown]
  - Influenza [Unknown]
  - Gastrooesophageal reflux disease [Unknown]
  - Gait disturbance [Unknown]
  - Abdominal pain upper [Unknown]
  - Skin disorder [Recovered/Resolved]
  - Anaemia [Unknown]
  - Insomnia [Unknown]

NARRATIVE: CASE EVENT DATE: 201901
